FAERS Safety Report 4388956-7 (Version None)
Quarter: 2004Q2

REPORT INFORMATION
  Report Type: 
  Country: None (occurrence: None)
  Receive Date: 20040624
  Receipt Date: 20040610
  Transmission Date: 20050107
  Serious: Yes (Hospitalization, Other)
  Sender: FDA-Public Use
  Company Number: ZONI001448

PATIENT
  Age: 51 Year
  Sex: Female
  Weight: 39.9165 kg

DRUGS (3)
  1. ZONEGRAN [Suspect]
     Indication: EPILEPSY
     Dosage: 300 MG DAILY ORAL
     Route: 048
     Dates: start: 20030201, end: 20030703
  2. MYSOLINE [Suspect]
     Dosage: 750 MG DAILY ORAL
     Route: 048
  3. ZOLOFT [Concomitant]

REACTIONS (4)
  - AGGRESSION [None]
  - BELLIGERENCE [None]
  - PSYCHOTIC DISORDER [None]
  - WEIGHT DECREASED [None]
